FAERS Safety Report 14635896 (Version 2)
Quarter: 2024Q3

REPORT INFORMATION
  Report Type: Spontaneous
  Country: IT (occurrence: IT)
  Receive Date: 20180314
  Receipt Date: 20240726
  Transmission Date: 20241017
  Serious: Yes (Other)
  Sender: AUROBINDO
  Company Number: IT-AUROBINDO-AUR-APL-2018-014522

PATIENT
  Age: 25 Year
  Sex: Male

DRUGS (5)
  1. QUETIAPINE [Suspect]
     Active Substance: QUETIAPINE
     Indication: Product used for unknown indication
     Dosage: UNK
     Route: 065
  2. OLANZAPINE [Suspect]
     Active Substance: OLANZAPINE
     Indication: Product used for unknown indication
     Dosage: UNK
     Route: 048
  3. ARIPIPRAZOLE [Suspect]
     Active Substance: ARIPIPRAZOLE
     Indication: Schizoaffective disorder
     Dosage: 300 MILLIGRAM
     Route: 065
     Dates: start: 201606
  4. ABILIFY MAINTENA [Suspect]
     Active Substance: ARIPIPRAZOLE
     Indication: Schizoaffective disorder
     Dosage: 300 MILLIGRAM
     Route: 065
     Dates: start: 201606
  5. VALPROIC ACID [Concomitant]
     Active Substance: VALPROIC ACID
     Indication: Pre-existing disease
     Dosage: ()
     Route: 065
     Dates: start: 201606

REACTIONS (6)
  - Psychiatric symptom [Unknown]
  - Condition aggravated [Unknown]
  - Musculoskeletal stiffness [Recovered/Resolved]
  - Oculogyric crisis [Recovered/Resolved]
  - Product use in unapproved indication [Unknown]
  - Prescribed underdose [Unknown]

NARRATIVE: CASE EVENT DATE: 20160601
